FAERS Safety Report 19878602 (Version 1)
Quarter: 2021Q3

REPORT INFORMATION
  Report Type: Spontaneous
  Country: US (occurrence: US)
  Receive Date: 20210924
  Receipt Date: 20210924
  Transmission Date: 20211014
  Serious: Yes (Other)
  Sender: FDA-Public Use
  Company Number: None

PATIENT
  Age: 75 Year
  Sex: Male
  Weight: 78.75 kg

DRUGS (8)
  1. ATENOLOL. [Concomitant]
     Active Substance: ATENOLOL
  2. ARAVA [Concomitant]
     Active Substance: LEFLUNOMIDE
  3. ENTRESTO [Suspect]
     Active Substance: SACUBITRIL\VALSARTAN
     Indication: CARDIAC FAILURE CONGESTIVE
     Dosage: ?          QUANTITY:1 CAPSULE(S);?
     Dates: start: 20210829, end: 20210902
  4. LOSARTAN. [Concomitant]
     Active Substance: LOSARTAN
  5. HUMIRA [Concomitant]
     Active Substance: ADALIMUMAB
  6. ASCORBIC ACID. [Concomitant]
     Active Substance: ASCORBIC ACID
  7. ASPIRIN LOW DOSE [Concomitant]
     Active Substance: ASPIRIN
  8. ROSUVASTATIN. [Concomitant]
     Active Substance: ROSUVASTATIN

REACTIONS (5)
  - Nausea [None]
  - Middle insomnia [None]
  - Vomiting [None]
  - Chest pain [None]
  - Salivary hypersecretion [None]

NARRATIVE: CASE EVENT DATE: 20210902
